FAERS Safety Report 18868345 (Version 18)
Quarter: 2022Q3

REPORT INFORMATION
  Report Type: Spontaneous
  Country: US (occurrence: US)
  Receive Date: 20210209
  Receipt Date: 20220919
  Transmission Date: 20221027
  Serious: Yes (Other)
  Sender: FDA-Public Use
  Company Number: US-GLAXOSMITHKLINE-US2021AMR028649

PATIENT

DRUGS (16)
  1. ZEJULA [Suspect]
     Active Substance: NIRAPARIB
     Indication: Ovarian cancer
     Dosage: UNK (100 MG ALT WITH 200 MG QD)
     Route: 048
     Dates: start: 202011
  2. ZEJULA [Suspect]
     Active Substance: NIRAPARIB
     Dosage: 100 MG, QOD
     Dates: start: 20210127
  3. ZEJULA [Suspect]
     Active Substance: NIRAPARIB
     Dosage: 200 MG, QOD
  4. ZEJULA [Suspect]
     Active Substance: NIRAPARIB
     Dosage: 100 MG, QOD
     Dates: start: 20210131
  5. ZEJULA [Suspect]
     Active Substance: NIRAPARIB
     Dosage: 200 MG, QOD
  6. ZEJULA [Suspect]
     Active Substance: NIRAPARIB
     Dosage: UNK, 100 MG ALTERNATING WITH 200 MG
  7. ZEJULA [Suspect]
     Active Substance: NIRAPARIB
     Dosage: UNK (100MG ALTERNATING 200MG DAILY)
  8. ZEJULA [Suspect]
     Active Substance: NIRAPARIB
     Dosage: UNK, QOD, QOD, 100MG EVERY OTHER DAY ALTERNATING WITH 200MG EVERY OTHER DAY
  9. ZEJULA [Suspect]
     Active Substance: NIRAPARIB
     Dosage: UNK (100MG ONCE DAILY ALTERNATING WITH 200MG ONCE DAILY EVERY OTHER DAY)
  10. ZEJULA [Suspect]
     Active Substance: NIRAPARIB
     Dosage: UNK (100MG, ALTERNATING WITH 200MG EVERY OTHER DAY)
     Route: 048
  11. ZEJULA [Suspect]
     Active Substance: NIRAPARIB
     Dosage: UNK UNK, Z
     Route: 048
  12. ZEJULA [Suspect]
     Active Substance: NIRAPARIB
     Dosage: 100MG BY MOUTH ALTERNATING WITH 200MG BY MOUTH EVERY OTHER DAY
     Route: 048
  13. ZEJULA [Suspect]
     Active Substance: NIRAPARIB
     Dosage: 100 MG DAILY, ALTERNATING WITH 200 MG EVERY OTHER DAY
  14. ZEJULA [Suspect]
     Active Substance: NIRAPARIB
     Dosage: UNK (USE AS DIRECTED)
     Route: 048
  15. ZEJULA [Suspect]
     Active Substance: NIRAPARIB
     Dosage: 100MG ALTERNATING WITH 200MG EVERY OTHER DAY
  16. AVASTIN [Suspect]
     Active Substance: BEVACIZUMAB
     Indication: Product used for unknown indication
     Dosage: UNK (INFUSIONS MONTHLY)

REACTIONS (33)
  - Atrial flutter [Unknown]
  - Protein urine present [Recovering/Resolving]
  - Platelet count decreased [Recovering/Resolving]
  - Blood pressure abnormal [Unknown]
  - Back disorder [Unknown]
  - Hypertension [Recovering/Resolving]
  - Myalgia [Not Recovered/Not Resolved]
  - Spinal stenosis [Unknown]
  - Nail disorder [Unknown]
  - Blood cholesterol increased [Not Recovered/Not Resolved]
  - Muscle spasms [Unknown]
  - Limb discomfort [Unknown]
  - Back pain [Recovering/Resolving]
  - Nausea [Not Recovered/Not Resolved]
  - Musculoskeletal stiffness [Not Recovered/Not Resolved]
  - Asthenia [Not Recovered/Not Resolved]
  - Insomnia [Unknown]
  - Fatigue [Not Recovered/Not Resolved]
  - Oedema [Unknown]
  - Memory impairment [Unknown]
  - Feeling abnormal [Unknown]
  - Peripheral swelling [Unknown]
  - Chest discomfort [Unknown]
  - Psychomotor hyperactivity [Unknown]
  - Hyperaesthesia teeth [Unknown]
  - Sinusitis [Unknown]
  - Upper-airway cough syndrome [Not Recovered/Not Resolved]
  - Dental care [Unknown]
  - Blood pressure increased [Recovering/Resolving]
  - Ligament sprain [Unknown]
  - Fibula fracture [Unknown]
  - Osteoporosis [Unknown]
  - Product use issue [Unknown]
